FAERS Safety Report 5779582-3 (Version None)
Quarter: 2008Q2

REPORT INFORMATION
  Report Type: 
  Country: None (occurrence: None)
  Receive Date: 20080619
  Receipt Date: 20071127
  Transmission Date: 20081010
  Serious: No
  Sender: FDA-Public Use
  Company Number: US-ASTRAZENECA-2007UW27016

PATIENT
  Age: 27147 Day
  Sex: Male
  Weight: 131.4 kg

DRUGS (12)
  1. ATACAND HCT [Suspect]
     Indication: CARDIAC DISORDER
     Dosage: 32MG/12.5 MG
     Route: 048
     Dates: start: 20070501
  2. ATACAND HCT [Suspect]
     Dosage: 16/12.5
     Route: 048
     Dates: start: 20070101
  3. AMITIZA [Suspect]
     Indication: CONSTIPATION
     Dosage: 24 MCG
     Route: 048
     Dates: start: 20071012, end: 20071012
  4. ATENOLOL [Concomitant]
     Route: 048
  5. AZMACORT [Concomitant]
  6. ISOSORBIDE DINITRATE [Concomitant]
  7. LANTUS [Concomitant]
     Dates: start: 20070101
  8. LIPITOR [Concomitant]
     Dates: start: 20020101
  9. MIRALAX [Concomitant]
     Dates: start: 20030101
  10. PREVACID [Concomitant]
     Dates: start: 19970101
  11. RHINOCORT [Concomitant]
     Route: 045
     Dates: start: 20030101
  12. ASPIRIN [Concomitant]
     Dates: start: 19920101

REACTIONS (4)
  - ASTHENIA [None]
  - BLOOD GLUCOSE INCREASED [None]
  - BLOOD PRESSURE DECREASED [None]
  - HEADACHE [None]
